FAERS Safety Report 17464903 (Version 1)
Quarter: 2020Q1

REPORT INFORMATION
  Report Type: Spontaneous
  Country: US (occurrence: US)
  Receive Date: 20200226
  Receipt Date: 20200226
  Transmission Date: 20200409
  Serious: No
  Sender: FDA-Public Use
  Company Number: US-ROCHE-2384874

PATIENT
  Age: 24 Year
  Sex: Female

DRUGS (1)
  1. ALECENSA [Suspect]
     Active Substance: ALECTINIB HYDROCHLORIDE
     Indication: PRODUCT USED FOR UNKNOWN INDICATION
     Route: 065
     Dates: start: 20190719

REACTIONS (6)
  - Abdominal pain upper [Unknown]
  - Fatigue [Unknown]
  - Abdominal distension [Unknown]
  - Joint swelling [Unknown]
  - Tremor [Unknown]
  - Bone pain [Unknown]

NARRATIVE: CASE EVENT DATE: 20190802
